FAERS Safety Report 9640326 (Version 3)
Quarter: 2013Q4

REPORT INFORMATION
  Report Type: Report from Study
  Country: NZ (occurrence: NZ)
  Receive Date: 20131023
  Receipt Date: 20131031
  Transmission Date: 20140711
  Serious: Yes (Hospitalization)
  Sender: FDA-Public Use
  Company Number: US-SANOFI-AVENTIS-2013SA076269

PATIENT
  Age: 69 Year
  Sex: Male
  Weight: 96.5 kg

DRUGS (28)
  1. DOCETAXEL [Suspect]
     Indication: NON-SMALL CELL LUNG CANCER STAGE IV
     Route: 042
     Dates: start: 20130108, end: 20130108
  2. DOCETAXEL [Suspect]
     Indication: NON-SMALL CELL LUNG CANCER STAGE IV
     Route: 042
     Dates: start: 20130417, end: 20130417
  3. BLINDED THERAPY [Suspect]
     Indication: NON-SMALL CELL LUNG CANCER STAGE IV
     Route: 042
     Dates: start: 20130108, end: 20130108
  4. BLINDED THERAPY [Suspect]
     Indication: NON-SMALL CELL LUNG CANCER STAGE IV
     Route: 042
     Dates: start: 20130717, end: 20130717
  5. BLINDED THERAPY [Suspect]
     Indication: NON-SMALL CELL LUNG CANCER STAGE IV
     Route: 042
     Dates: start: 20130728, end: 20130728
  6. M-ESLON [Concomitant]
     Indication: PAIN
     Dates: start: 20130318
  7. SEVREDOL [Concomitant]
     Dates: start: 20130318
  8. AMOXICILLIN [Concomitant]
     Dates: start: 20130607, end: 20130610
  9. FUROSEMIDE [Concomitant]
     Dates: start: 20130125
  10. PARACETAMOL [Concomitant]
     Indication: PAIN
     Dates: start: 2006
  11. FELODIPINE [Concomitant]
     Indication: HYPERTENSION
     Dates: start: 2006
  12. AMITRIPTYLINE [Concomitant]
     Indication: SLEEP DISORDER
     Dates: start: 2006
  13. SIMVASTATIN [Concomitant]
     Indication: BLOOD CHOLESTEROL INCREASED
     Dates: start: 2006
  14. ATENOLOL [Concomitant]
     Indication: HYPERTENSION
     Dates: start: 2006
  15. DOCUSATE SODIUM\SENNOSIDES [Concomitant]
     Indication: CONSTIPATION
     Dates: start: 20130125
  16. SALBUTAMOL [Concomitant]
     Indication: DYSPNOEA
     Dates: start: 20130212
  17. TERAZOSIN HYDROCHLORIDE [Concomitant]
  18. CILAZAPRIL [Concomitant]
  19. DOXYCYCLINE [Concomitant]
  20. THIAMINE [Concomitant]
  21. VITAMIN B COMPLEX [Concomitant]
  22. PANTOPRAZOLE [Concomitant]
     Dates: start: 2006
  23. FUROSEMIDE [Concomitant]
     Indication: JOINT SWELLING
     Dates: start: 20130125
  24. SPIRONOLACTONE [Concomitant]
     Indication: JOINT SWELLING
     Dates: start: 20130416
  25. DEXAMETHASONE [Concomitant]
     Indication: DYSPNOEA
     Dates: start: 20130728
  26. DILTIAZEM [Concomitant]
     Indication: SINUS TACHYCARDIA
     Dates: start: 20130728
  27. OMEPRAZOLE [Concomitant]
     Indication: GASTROOESOPHAGEAL REFLUX DISEASE
     Dates: start: 20130728
  28. MORPHINE [Concomitant]
     Indication: PAIN

REACTIONS (2)
  - Cellulitis [Recovering/Resolving]
  - Lower respiratory tract infection [Recovering/Resolving]
